FAERS Safety Report 7418649-0 (Version None)
Quarter: 2011Q2

REPORT INFORMATION
  Report Type: 
  Country: None (occurrence: None)
  Receive Date: 20110415
  Receipt Date: 20101021
  Transmission Date: 20111010
  Serious: Yes (Hospitalization, Disabling, Other)
  Sender: FDA-Public Use
  Company Number: US-BAYER-200933377NA

PATIENT
  Age: 29 Year
  Sex: Female
  Weight: 78 kg

DRUGS (21)
  1. YASMIN [Suspect]
     Indication: ORAL CONTRACEPTION
     Route: 048
     Dates: start: 20040101
  2. PANTOPRAZOLE [Concomitant]
  3. ASPIRIN [Concomitant]
     Dosage: 81 MG
     Route: 065
  4. EXCEDRIN (MIGRAINE) [Concomitant]
     Indication: MIGRAINE
  5. ANTITHROMBOTIC AGENTS [Concomitant]
  6. EXCEDRIN TENSION HEADACHE [Concomitant]
  7. COTYLENOL [CHLORPHENAM MAL,DEXTROMET HBR,PARACET,PSEUDOEPH HCL] [Concomitant]
  8. ZYRTEC [Concomitant]
  9. PLAVIX [Concomitant]
  10. TYLENOL SINUS MEDICATION [Concomitant]
  11. PANTOPRAZOLE [Concomitant]
  12. AGGRENOX [Concomitant]
  13. TYLENOL COLD [Concomitant]
  14. AMOXICILLIN [Concomitant]
  15. EXCEDRIN (MIGRAINE) [Concomitant]
     Indication: TENSION
  16. DESOGEN [Concomitant]
     Indication: MENSTRUATION IRREGULAR
  17. RHINABID [Concomitant]
  18. EXCEDRIN (MIGRAINE) [Concomitant]
  19. IBUPROFEN [Concomitant]
  20. EXCEDRIN (MIGRAINE) [Concomitant]
  21. ANTITHROMBOTIC AGENTS [Concomitant]

REACTIONS (8)
  - AGRAPHIA [None]
  - ISCHAEMIC STROKE [None]
  - ALOPECIA [None]
  - PAIN [None]
  - VISUAL IMPAIRMENT [None]
  - LEARNING DISORDER [None]
  - APHASIA [None]
  - COGNITIVE DISORDER [None]
